FAERS Safety Report 9754195 (Version 1)
Quarter: 2013Q4

REPORT INFORMATION
  Report Type: Spontaneous
  Country: US (occurrence: US)
  Receive Date: 20131213
  Receipt Date: 20131213
  Transmission Date: 20140711
  Serious: No
  Sender: FDA-Public Use
  Company Number: US-GLAXOSMITHKLINE-A1038905A

PATIENT
  Sex: Female

DRUGS (2)
  1. NICORETTE NICOTINE POLACRILEX LOZENGE [Suspect]
  2. CODEINE [Concomitant]

REACTIONS (4)
  - Nausea [Unknown]
  - Bone pain [Unknown]
  - Overdose [Unknown]
  - Malaise [Unknown]
